FAERS Safety Report 10057271 (Version 1)
Quarter: 2014Q2

REPORT INFORMATION
  Report Type: Spontaneous
  Country: US (occurrence: US)
  Receive Date: 20140403
  Receipt Date: 20140403
  Transmission Date: 20141212
  Serious: Yes (Death, Hospitalization, Other)
  Sender: FDA-Public Use
  Company Number: US-GILEAD-2014-0098751

PATIENT
  Sex: Female

DRUGS (2)
  1. LETAIRIS [Suspect]
     Indication: PRODUCT USED FOR UNKNOWN INDICATION
     Route: 048
     Dates: start: 20120604, end: 20140331
  2. REMODULIN [Concomitant]

REACTIONS (3)
  - Pulmonary arterial hypertension [Fatal]
  - Unevaluable event [Unknown]
  - Unevaluable event [Unknown]
